FAERS Safety Report 4621469-3 (Version None)
Quarter: 2005Q2

REPORT INFORMATION
  Report Type: 
  Country: None (occurrence: None)
  Receive Date: 20050317
  Receipt Date: 20040202
  Transmission Date: 20051028
  Serious: Yes (Other)
  Sender: FDA-Public Use
  Company Number: PHEH2004US01548

PATIENT
  Sex: Female

DRUGS (2)
  1. TRILEPTAL [Suspect]
  2. ABILITY (ARIPAPRAZOLE) [Concomitant]

REACTIONS (1)
  - HYPONATRAEMIA [None]
